FAERS Safety Report 5811832-7 (Version None)
Quarter: 2008Q3

REPORT INFORMATION
  Report Type: 
  Country: None (occurrence: None)
  Receive Date: 20080715
  Receipt Date: 20080715
  Transmission Date: 20090109
  Serious: Yes (Hospitalization)
  Sender: FDA-Public Use
  Company Number: None

PATIENT
  Age: 93 Year
  Sex: Female

DRUGS (6)
  1. COUMADIN [Suspect]
     Indication: DEEP VEIN THROMBOSIS
     Dosage: 5MG 4 TIMES WEEKLY PO 7.5MG 3 TIMES WEEKLY PO
     Route: 048
     Dates: start: 20080305, end: 20080403
  2. IMDUR [Concomitant]
  3. TRENTAL [Concomitant]
  4. TOPROL-XL [Concomitant]
  5. DYAZIDE [Concomitant]
  6. NITROGLYCERIN [Concomitant]

REACTIONS (3)
  - CHEST PAIN [None]
  - HAEMOGLOBIN DECREASED [None]
  - MELAENA [None]
